FAERS Safety Report 24789284 (Version 1)
Quarter: 2024Q4

REPORT INFORMATION
  Report Type: Report from Study
  Country: US (occurrence: US)
  Receive Date: 20241230
  Receipt Date: 20241230
  Transmission Date: 20250114
  Serious: Yes (Hospitalization)
  Sender: TAKEDA
  Company Number: US-TAKEDA-2015DX000162

PATIENT
  Age: 23 Year
  Sex: Male

DRUGS (13)
  1. ICATIBANT [Suspect]
     Active Substance: ICATIBANT ACETATE
     Indication: Immune system disorder
     Dosage: 30 MILLIGRAM
  2. ICATIBANT [Suspect]
     Active Substance: ICATIBANT ACETATE
     Dosage: 30 MILLIGRAM
  3. ICATIBANT [Suspect]
     Active Substance: ICATIBANT ACETATE
     Dosage: 30 MILLIGRAM
  4. KALBITOR [Suspect]
     Active Substance: ECALLANTIDE
     Indication: Hereditary angioedema
     Dosage: 30 MILLIGRAM, BID
     Dates: start: 20150406
  5. TAKHZYRO [Suspect]
     Active Substance: LANADELUMAB-FLYO
     Indication: Hereditary angioedema
     Dosage: 300 MILLIGRAM, Q2WEEKS
     Dates: start: 20220923
  6. TAKHZYRO [Suspect]
     Active Substance: LANADELUMAB-FLYO
     Indication: Immune system disorder
     Dosage: 300 MILLIGRAM, Q2WEEKS
     Dates: start: 202209
  7. TAKHZYRO [Suspect]
     Active Substance: LANADELUMAB-FLYO
     Dosage: 300 MILLIGRAM, Q2WEEKS
     Dates: start: 20230113
  8. TAKHZYRO [Suspect]
     Active Substance: LANADELUMAB-FLYO
     Dosage: 300 MILLIGRAM, Q2WEEKS
  9. BERINERT [Suspect]
     Active Substance: HUMAN C1-ESTERASE INHIBITOR
     Indication: Hereditary angioedema
     Dosage: UNK
     Dates: start: 20150406, end: 20150406
  10. RUCONEST [Concomitant]
     Active Substance: CONESTAT ALFA
     Dosage: UNK
  11. SODIUM CHLORIDE [Concomitant]
     Active Substance: SODIUM CHLORIDE
     Dosage: UNK
  12. HAEGARDA [Concomitant]
     Active Substance: HUMAN C1-ESTERASE INHIBITOR
     Dosage: UNK
  13. STERILE WATER [Concomitant]
     Active Substance: WATER
     Dosage: UNK

REACTIONS (10)
  - Post procedural complication [Unknown]
  - Weight increased [Unknown]
  - Drug ineffective [Unknown]
  - Weight decreased [Unknown]
  - Haematoma [Unknown]
  - Insurance issue [Unknown]
  - Product use issue [Unknown]
  - Tooth fracture [Unknown]
  - Hernia [Unknown]
  - Hereditary angioedema [Recovered/Resolved]

NARRATIVE: CASE EVENT DATE: 20150406
